FAERS Safety Report 6973095-9 (Version None)
Quarter: 2010Q3

REPORT INFORMATION
  Report Type: 
  Country: None (occurrence: None)
  Receive Date: 20100909
  Receipt Date: 20100902
  Transmission Date: 20110219
  Serious: Yes (Hospitalization)
  Sender: FDA-Public Use
  Company Number: GB-BRISTOL-MYERS SQUIBB COMPANY-15273824

PATIENT
  Age: 64 Year
  Sex: Male

DRUGS (3)
  1. CETUXIMAB [Suspect]
     Indication: OESOPHAGEAL CARCINOMA
     Dosage: INTERRUPTED ON 06SEP2010
     Route: 041
     Dates: start: 20100621
  2. CISPLATIN [Suspect]
     Indication: OESOPHAGEAL CARCINOMA
     Dosage: INTERRUPTED ON 23AUG10
     Route: 042
     Dates: start: 20100621
  3. CAPECITABINE [Suspect]
     Indication: OESOPHAGEAL CARCINOMA
     Dosage: INTERRUPTED ON 12SEP10
     Route: 048
     Dates: start: 20100621

REACTIONS (1)
  - DYSPNOEA [None]
